FAERS Safety Report 18137374 (Version 3)
Quarter: 2020Q3

REPORT INFORMATION
  Report Type: Spontaneous
  Country: US (occurrence: US)
  Receive Date: 20200812
  Receipt Date: 20200915
  Transmission Date: 20201103
  Serious: No
  Sender: FDA-Public Use
  Company Number: US-SA-2020SA209073

PATIENT

DRUGS (1)
  1. CABLIVI [Suspect]
     Active Substance: CAPLACIZUMAB-YHDP
     Indication: THROMBOTIC MICROANGIOPATHY
     Dosage: 11 MG, QD
     Route: 058
     Dates: start: 20200724

REACTIONS (5)
  - Acne [Unknown]
  - Intentional product misuse [Unknown]
  - Injection site reaction [Unknown]
  - Paraesthesia [Unknown]
  - Constipation [Unknown]

NARRATIVE: CASE EVENT DATE: 20200909
